FAERS Safety Report 6411609-8 (Version None)
Quarter: 2009Q4

REPORT INFORMATION
  Report Type: 
  Country: None (occurrence: None)
  Receive Date: 20091023
  Receipt Date: 20091016
  Transmission Date: 20100525
  Serious: Yes (Hospitalization)
  Sender: FDA-Public Use
  Company Number: US-AMGEN-QUU339078

PATIENT
  Sex: Female

DRUGS (3)
  1. ENBREL [Suspect]
     Indication: RHEUMATOID ARTHRITIS
     Route: 058
     Dates: start: 20060801
  2. PLAQUENIL [Concomitant]
     Route: 048
  3. UNSPECIFIED ANTIBIOTIC [Concomitant]

REACTIONS (4)
  - CARBOHYDRATE ANTIGEN 125 INCREASED [None]
  - CYSTITIS [None]
  - DIARRHOEA [None]
  - MENSTRUAL DISORDER [None]
